FAERS Safety Report 8248449-3 (Version None)
Quarter: 2012Q1

REPORT INFORMATION
  Report Type: 
  Country: None (occurrence: None)
  Receive Date: 20120330
  Receipt Date: 20120322
  Transmission Date: 20120608
  Serious: Yes (Hospitalization)
  Sender: FDA-Public Use
  Company Number: CA-ELI_LILLY_AND_COMPANY-CA201112007691

PATIENT
  Age: 69 Year
  Sex: Female

DRUGS (32)
  1. SIALOR [Concomitant]
  2. HUMALOG [Concomitant]
  3. ASPIRIN [Concomitant]
  4. SOFLAX [Concomitant]
  5. MAGNESIUM [Concomitant]
  6. PREDNISONE TAB [Concomitant]
  7. SINGULAIR [Concomitant]
  8. SALVENT [Concomitant]
  9. SENOKOT [Concomitant]
  10. FORTEO [Suspect]
     Indication: OSTEOPOROSIS
     Dosage: 20 UG, QD
     Route: 058
     Dates: start: 20110702, end: 20111201
  11. DOMPERIDONE [Concomitant]
  12. CODEINE CONTIN [Concomitant]
  13. ADVAIR DISKUS 100/50 [Concomitant]
  14. LACTULOSE [Concomitant]
  15. VITAMIN B-12 [Concomitant]
  16. ENTROPHEN [Concomitant]
  17. NEXIUM [Concomitant]
  18. FLONASE [Concomitant]
  19. LANTUS [Concomitant]
  20. FUROSEMIDE [Concomitant]
  21. VITAMIN D [Concomitant]
  22. CALCIUM CARBONATE [Concomitant]
  23. VITAMIN B COMPLEX CAP [Concomitant]
  24. FISH OIL [Concomitant]
  25. FORTEO [Suspect]
     Dosage: 20 UG, QD
     Route: 058
  26. FORTEO [Suspect]
     Dosage: 20 UG, QD
     Route: 058
     Dates: start: 20120102
  27. DIOVAN [Concomitant]
  28. LASIX [Concomitant]
  29. PLAQUENIL [Concomitant]
  30. FOLIC ACID [Concomitant]
  31. NYSTATIN [Concomitant]
     Indication: RASH
  32. PROBIOTICS [Concomitant]

REACTIONS (12)
  - CHEST PAIN [None]
  - HERPES ZOSTER [None]
  - PAIN IN JAW [None]
  - NASOPHARYNGITIS [None]
  - BRUXISM [None]
  - BRONCHITIS [None]
  - ORAL CANDIDIASIS [None]
  - PNEUMONIA [None]
  - SENSITIVITY OF TEETH [None]
  - DYSPNOEA [None]
  - COUGH [None]
  - VIRAL PERICARDITIS [None]
